FAERS Safety Report 7045559-3 (Version None)
Quarter: 2010Q4

REPORT INFORMATION
  Report Type: 
  Country: None (occurrence: None)
  Receive Date: 20101014
  Receipt Date: 20101012
  Transmission Date: 20110411
  Serious: No
  Sender: FDA-Public Use
  Company Number: US-PURDUE-USA-2010-0047734

PATIENT
  Sex: Female

DRUGS (1)
  1. MS CONTIN [Suspect]
     Indication: PAIN
     Dosage: 1 TABLET, BID
     Route: 048
     Dates: start: 20100301

REACTIONS (3)
  - NEGATIVE THOUGHTS [None]
  - PAIN [None]
  - WEIGHT INCREASED [None]
